FAERS Safety Report 13241442 (Version 1)
Quarter: 2017Q1

REPORT INFORMATION
  Report Type: Spontaneous
  Country: GB (occurrence: GB)
  Receive Date: 20170216
  Receipt Date: 20170216
  Transmission Date: 20170428
  Serious: Yes (Other)
  Sender: FDA-Public Use
  Company Number: GB-PFIZER INC-2017060806

PATIENT
  Age: 68 Year
  Sex: Male
  Weight: 65 kg

DRUGS (2)
  1. CIPROFLOXACIN. [Suspect]
     Active Substance: CIPROFLOXACIN
     Indication: EYE INFECTION
     Dosage: 1 GTT, 4 TIMES DAILY
     Route: 050
     Dates: start: 20170112, end: 20170116
  2. COD LIVER OIL [Concomitant]
     Active Substance: COD LIVER OIL
     Dosage: UNK

REACTIONS (2)
  - Foreign body sensation in eyes [Recovered/Resolved]
  - Pain [Recovered/Resolved]

NARRATIVE: CASE EVENT DATE: 20170112
